FAERS Safety Report 15231355 (Version 2)
Quarter: 2018Q3

REPORT INFORMATION
  Report Type: Report from Study
  Country: BR (occurrence: BR)
  Receive Date: 20180802
  Receipt Date: 20180807
  Transmission Date: 20181010
  Serious: Yes (Other)
  Sender: FDA-Public Use
  Company Number: PHHY2018BR034405

PATIENT
  Age: 4 Day
  Sex: Male
  Weight: 41 kg

DRUGS (15)
  1. XOLAIR [Suspect]
     Active Substance: OMALIZUMAB
     Dosage: UNK
     Route: 058
     Dates: start: 20180623
  2. MONTELUKAST [Concomitant]
     Active Substance: MONTELUKAST SODIUM
     Indication: PRODUCT USED FOR UNKNOWN INDICATION
     Route: 065
  3. BUDECORT AQUA [Concomitant]
     Active Substance: BUDESONIDE
     Indication: ASTHMA
     Dosage: (STARTED 1 MONTH AGO)
     Route: 055
  4. XOLAIR [Suspect]
     Active Substance: OMALIZUMAB
     Dosage: 300 MG, EVERY 15 DAYS
     Route: 058
     Dates: start: 20180301
  5. FLIXOTIDE [Concomitant]
     Active Substance: FLUTICASONE PROPIONATE
     Indication: PRODUCT USED FOR UNKNOWN INDICATION
     Route: 065
  6. XOLAIR [Suspect]
     Active Substance: OMALIZUMAB
     Indication: ASTHMA
     Dosage: 4 DF (600 MG), EVERY 15 DAYS
     Route: 058
     Dates: start: 201706
  7. XOLAIR [Suspect]
     Active Substance: OMALIZUMAB
     Dosage: 300 MG, EVERY 15 DAYS
     Route: 058
     Dates: start: 20180126
  8. XOLAIR [Suspect]
     Active Substance: OMALIZUMAB
     Dosage: 300 MG, EVERY 15 DAYS
     Route: 058
     Dates: start: 20171120
  9. SERETIDE [Concomitant]
     Active Substance: FLUTICASONE PROPIONATE\SALMETEROL XINAFOATE
     Indication: ASTHMA
     Dosage: 2 DF (ASPIRATIONS ), QD (SINCE THE AGE OF 3 YEARS)
     Route: 055
  10. XOLAIR [Suspect]
     Active Substance: OMALIZUMAB
     Dosage: 300 MG, EVERY 15 DAYS
     Route: 058
     Dates: start: 20180212
  11. XOLAIR [Suspect]
     Active Substance: OMALIZUMAB
     Dosage: 300 MG, EVERY 15 DAYS
     Route: 058
     Dates: start: 20180315
  12. AEROLIN [Concomitant]
     Active Substance: ALBUTEROL
     Indication: ASTHMA
     Dosage: STARTED 5 YEARS AGO
     Route: 055
  13. XOLAIR [Suspect]
     Active Substance: OMALIZUMAB
     Dosage: 300 MG, EVERY 15 DAYS
     Route: 058
     Dates: start: 20171206
  14. XOLAIR [Suspect]
     Active Substance: OMALIZUMAB
     Dosage: 300 MG, EVERY 15 DAYS
     Route: 058
     Dates: start: 20180413, end: 20180420
  15. FLUOXETINE [Suspect]
     Active Substance: FLUOXETINE HYDROCHLORIDE
     Indication: PRODUCT USED FOR UNKNOWN INDICATION
     Route: 065

REACTIONS (18)
  - Skin haemorrhage [Not Recovered/Not Resolved]
  - Malaise [Recovered/Resolved]
  - Seasonal allergy [Not Recovered/Not Resolved]
  - Catarrh [Not Recovered/Not Resolved]
  - Urticaria [Not Recovered/Not Resolved]
  - Asthma [Not Recovered/Not Resolved]
  - Urticaria [Recovered/Resolved]
  - Pruritus [Not Recovered/Not Resolved]
  - Overweight [Recovering/Resolving]
  - Rhinitis [Not Recovered/Not Resolved]
  - Dizziness [Recovered/Resolved]
  - Wound haemorrhage [Not Recovered/Not Resolved]
  - Middle insomnia [Unknown]
  - Syncope [Recovered/Resolved]
  - Epistaxis [Not Recovered/Not Resolved]
  - Increased bronchial secretion [Not Recovered/Not Resolved]
  - Dyspnoea [Not Recovered/Not Resolved]
  - Fatigue [Not Recovered/Not Resolved]

NARRATIVE: CASE EVENT DATE: 20081120
